FAERS Safety Report 15407100 (Version 3)
Quarter: 2018Q4

REPORT INFORMATION
  Report Type: Spontaneous
  Country: FR (occurrence: FR)
  Receive Date: 20180920
  Receipt Date: 20181009
  Transmission Date: 20190204
  Serious: Yes (Hospitalization, Other)
  Sender: FDA-Public Use
  Company Number: FR-PFIZER INC-2015162768

PATIENT
  Age: 65 Year
  Sex: Female
  Weight: 62 kg

DRUGS (21)
  1. ARACYTINE [Suspect]
     Active Substance: CYTARABINE
     Indication: DIFFUSE LARGE B-CELL LYMPHOMA
     Dosage: 30 MG, DAILY
     Route: 037
     Dates: start: 20150227, end: 20150325
  2. ARACYTINE [Suspect]
     Active Substance: CYTARABINE
     Dosage: 1650 MG, DAILY
     Route: 042
     Dates: start: 20150303, end: 20150327
  3. CRESTOR [Concomitant]
     Active Substance: ROSUVASTATIN CALCIUM
     Dosage: 1 DF(10), 1X/DAY
  4. UVEDOSE [Concomitant]
     Active Substance: CHOLECALCIFEROL
     Dosage: 100000 UNK, UNK
  5. LOVENOX [Concomitant]
     Active Substance: ENOXAPARIN SODIUM
     Dosage: 0.4 UNK, UNK FOR 1 MONTH
  6. HYTACAND [Concomitant]
     Active Substance: CANDESARTAN CILEXETIL\HYDROCHLOROTHIAZIDE
     Dosage: 1 DF (8/12.5), 1X/DAY
  7. DIAMICRON [Concomitant]
     Active Substance: GLICLAZIDE
     Dosage: 2 DF (60X2), 1X/DAY
  8. STAGID [Concomitant]
     Active Substance: METFORMIN PAMOATE
     Dosage: 1 DF (700), 3X/DAY
  9. LANTUS [Concomitant]
     Active Substance: INSULIN GLARGINE
     Dosage: 20 IU, 1X/DAY
  10. METHOTREXATE SODIUM. [Suspect]
     Active Substance: METHOTREXATE SODIUM
     Indication: METASTASES TO MENINGES
     Dosage: 15 MG, 1X/DAY
     Route: 037
     Dates: start: 20150227, end: 20150325
  11. MABTHERA [Suspect]
     Active Substance: RITUXIMAB
     Indication: DIFFUSE LARGE B-CELL LYMPHOMA
     Dosage: 610 MG, DAILY
     Route: 042
     Dates: start: 20150302, end: 20150324
  12. CALCIDOSE VITAMINE D [Concomitant]
     Active Substance: CALCIUM\CHOLECALCIFEROL
     Dosage: 1 DF, 1X/DAY
  13. LYRICA [Concomitant]
     Active Substance: PREGABALIN
     Dosage: 1 DF (150), 2X/DAY
  14. DOLIPRANE [Concomitant]
     Active Substance: ACETAMINOPHEN
     Dosage: 1 DF(1000), 3X/DAY
  15. ECONAZOLE. [Concomitant]
     Active Substance: ECONAZOLE NITRATE
     Dosage: UNK
  16. METHOTREXATE SODIUM. [Suspect]
     Active Substance: METHOTREXATE SODIUM
     Dosage: 4900 MG, 1X/DAY
     Route: 042
     Dates: start: 20150303, end: 20150325
  17. OXYCONTIN [Concomitant]
     Active Substance: OXYCODONE HYDROCHLORIDE
     Dosage: 1 DF (5), 2X/DAY
  18. FORLAX [Concomitant]
     Active Substance: POLYETHYLENE GLYCOL 4000
     Dosage: 20 UNK (10X2), 1X/DAY
  19. PRIMPERAN [Concomitant]
     Active Substance: METOCLOPRAMIDE HYDROCHLORIDE
     Dosage: 1 DF (10), 3X/DAY
  20. JANUVIA [Concomitant]
     Active Substance: SITAGLIPTIN PHOSPHATE
     Dosage: 1 DF (100), 1X/DAY
  21. VANCOMYCIN [Concomitant]
     Active Substance: VANCOMYCIN
     Dosage: UNK
     Dates: start: 20141003

REACTIONS (4)
  - Osmotic demyelination syndrome [Not Recovered/Not Resolved]
  - Aphasia [Not Recovered/Not Resolved]
  - Altered state of consciousness [Not Recovered/Not Resolved]
  - Product use in unapproved indication [Unknown]

NARRATIVE: CASE EVENT DATE: 20150406
